FAERS Safety Report 11139746 (Version 3)
Quarter: 2015Q4

REPORT INFORMATION
  Report Type: Spontaneous
  Country: JP (occurrence: JP)
  Receive Date: 20150527
  Receipt Date: 20151106
  Transmission Date: 20160304
  Serious: Yes (Death)
  Sender: FDA-Public Use
  Company Number: JP-TEVA-564623ISR

PATIENT
  Age: 54 Year
  Sex: Male
  Weight: 58 kg

DRUGS (10)
  1. E-FEN BUCCAL [Suspect]
     Active Substance: FENTANYL CITRATE
     Dosage: DAILY DOSE: 200MCG-1200MCG. ONE TIME DOSE: 200MCG
     Route: 002
     Dates: start: 20150215, end: 20150217
  2. E-FEN BUCCAL [Suspect]
     Active Substance: FENTANYL CITRATE
     Indication: BREAKTHROUGH PAIN
     Dosage: 400 MICROGRAM DAILY; ONE TIME DOSE: 100MCG
     Route: 002
     Dates: start: 20150214, end: 20150214
  3. DUROTEP [Concomitant]
     Active Substance: FENTANYL
     Indication: CANCER PAIN
     Dosage: 16.8 MILLIGRAM DAILY;
     Route: 062
     Dates: start: 20150210, end: 20150328
  4. E-FEN BUCCAL [Suspect]
     Active Substance: FENTANYL CITRATE
     Dosage: 400 MICROGRAM DAILY; ONE TIME DOSE: 400MCG
     Route: 002
     Dates: start: 20150227, end: 20150328
  5. E-FEN BUCCAL [Suspect]
     Active Substance: FENTANYL CITRATE
     Dosage: DAILY DOSE: 0MCG-1200MCG. ONE TIME DOSE: 400MCG
     Route: 002
     Dates: start: 20150218, end: 20150226
  6. NAIXAN [Concomitant]
     Active Substance: NAPROXEN SODIUM
     Indication: CANCER PAIN
     Dosage: 300 MILLIGRAM DAILY;
     Route: 048
     Dates: start: 20150130, end: 20150316
  7. TS-1(TEGAFUR/GIMERACIL/OTERACIL POTASSIUM COMBINED DRUG) [Concomitant]
     Indication: CHEMOTHERAPY
     Dosage: ONE TIME DOSE: 100 MG
     Route: 065
     Dates: start: 20150123, end: 20150319
  8. LYRICA [Concomitant]
     Active Substance: PREGABALIN
     Indication: CANCER PAIN
     Dosage: 75 MILLIGRAM DAILY;
     Route: 048
     Dates: start: 20150130, end: 20150316
  9. LOXONIN [Concomitant]
     Active Substance: LOXOPROFEN SODIUM
     Indication: CANCER PAIN
     Dosage: 180 MILLIGRAM DAILY;
     Route: 048
     Dates: start: 20150130, end: 20150316
  10. TAXOTERE [Concomitant]
     Active Substance: DOCETAXEL
     Indication: CHEMOTHERAPY
     Dosage: ONE TIME DOSE: 60 MG
     Route: 065
     Dates: start: 20150123, end: 20150319

REACTIONS (2)
  - Gastric cancer [Fatal]
  - Stomatitis [Unknown]

NARRATIVE: CASE EVENT DATE: 20150302
